FAERS Safety Report 5759549-1 (Version None)
Quarter: 2008Q2

REPORT INFORMATION
  Report Type: 
  Country: None (occurrence: None)
  Receive Date: 20080604
  Receipt Date: 20080604
  Transmission Date: 20081010
  Serious: No
  Sender: FDA-Public Use
  Company Number: None

PATIENT
  Sex: Female
  Weight: 84.369 kg

DRUGS (2)
  1. DARVOCET-N 100 [Suspect]
     Indication: BACK PAIN
     Dosage: 100MG/650MG ONE PO BID PO
     Route: 048
     Dates: start: 20001201
  2. DARVOCET-N 100 [Suspect]
     Indication: RADICULOPATHY
     Dosage: 100MG/650MG ONE PO BID PO
     Route: 048
     Dates: start: 20001201

REACTIONS (2)
  - ABDOMINAL DISCOMFORT [None]
  - RASH [None]
